FAERS Safety Report 9657010 (Version 1)
Quarter: 2013Q4

REPORT INFORMATION
  Report Type: Spontaneous
  Country: IT (occurrence: IT)
  Receive Date: 20131030
  Receipt Date: 20131030
  Transmission Date: 20140711
  Serious: Yes (Other)
  Sender: FDA-Public Use
  Company Number: IT-JNJFOC-20131015344

PATIENT
  Age: 43 Year
  Sex: Male
  Weight: 73 kg

DRUGS (2)
  1. REMICADE [Suspect]
     Indication: CROHN^S DISEASE
     Dosage: 100 MG STRENGTH
     Route: 042
     Dates: start: 201203
  2. REMICADE [Suspect]
     Indication: CROHN^S DISEASE
     Dosage: 100 MG STRENGTH
     Route: 042
     Dates: start: 20131011, end: 20131011

REACTIONS (4)
  - Face oedema [Recovered/Resolved]
  - Erythema [Recovered/Resolved]
  - Rhinitis [Recovered/Resolved]
  - Infusion related reaction [Recovered/Resolved]
